FAERS Safety Report 24884281 (Version 2)
Quarter: 2025Q1

REPORT INFORMATION
  Report Type: Report from Study
  Country: BR (occurrence: BR)
  Receive Date: 20250124
  Receipt Date: 20250213
  Transmission Date: 20250409
  Serious: Yes (Hospitalization, Other)
  Sender: JOHNSON AND JOHNSON
  Company Number: BR-JNJFOC-20250157832

PATIENT
  Age: 43 Year
  Sex: Male
  Weight: 49 kg

DRUGS (2)
  1. INFLIXIMAB [Suspect]
     Active Substance: INFLIXIMAB
     Indication: Crohn^s disease
     Route: 041
  2. INFLIXIMAB [Suspect]
     Active Substance: INFLIXIMAB
     Indication: Crohn^s disease
     Route: 041

REACTIONS (4)
  - Abdominal sepsis [Unknown]
  - Intestinal perforation [Unknown]
  - Gastrointestinal stoma complication [Unknown]
  - Ostomy bag placement [Unknown]

NARRATIVE: CASE EVENT DATE: 20241101
